FAERS Safety Report 18695058 (Version 1)
Quarter: 2021Q1

REPORT INFORMATION
  Report Type: Spontaneous
  Country: US (occurrence: US)
  Receive Date: 20210102
  Receipt Date: 20210102
  Transmission Date: 20210419
  Serious: Yes (Death, Hospitalization)
  Sender: FDA-Public Use
  Company Number: None

PATIENT
  Age: 69 Year
  Sex: Male

DRUGS (11)
  1. SILDENAFIL. [Suspect]
     Active Substance: SILDENAFIL
     Indication: CHRONIC OBSTRUCTIVE PULMONARY DISEASE
     Route: 048
     Dates: start: 20190312, end: 20201221
  2. POT CHLORIDE [Concomitant]
     Active Substance: POTASSIUM CHLORIDE
  3. TAMSULOSIN [Concomitant]
     Active Substance: TAMSULOSIN
  4. CLOPIDOGREL [Concomitant]
     Active Substance: CLOPIDOGREL BISULFATE
  5. PANTOPROZOLE [Concomitant]
     Active Substance: PANTOPRAZOLE SODIUM
  6. AMIODARONE [Concomitant]
     Active Substance: AMIODARONE
  7. ALPHAGAN P [Concomitant]
     Active Substance: BRIMONIDINE TARTRATE
  8. METOLAZONE. [Concomitant]
     Active Substance: METOLAZONE
  9. ATORVASTATIN [Concomitant]
     Active Substance: ATORVASTATIN
  10. GABAPENTIN. [Concomitant]
     Active Substance: GABAPENTIN
  11. SPIRONOLACT [Concomitant]
     Active Substance: SPIRONOLACTONE

REACTIONS (1)
  - Renal failure [None]

NARRATIVE: CASE EVENT DATE: 20201221
